FAERS Safety Report 14454003 (Version 1)
Quarter: 2018Q1

REPORT INFORMATION
  Report Type: Spontaneous
  Country: US (occurrence: US)
  Receive Date: 20180129
  Receipt Date: 20180129
  Transmission Date: 20180509
  Serious: No
  Sender: FDA-Public Use
  Company Number: US-ALLERGAN-1709030US

PATIENT
  Sex: Male

DRUGS (2)
  1. TAZORAC [Suspect]
     Active Substance: TAZAROTENE
     Indication: RASH
     Route: 061
  2. OMEPRAZOLE. [Concomitant]
     Active Substance: OMEPRAZOLE
     Indication: ABDOMINAL PAIN UPPER
     Dosage: UNK

REACTIONS (3)
  - Application site exfoliation [Recovered/Resolved]
  - Application site pain [Recovered/Resolved]
  - Drug ineffective [Unknown]
